FAERS Safety Report 20329410 (Version 1)
Quarter: 2022Q1

REPORT INFORMATION
  Report Type: Report from Study
  Country: MX (occurrence: MX)
  Receive Date: 20220112
  Receipt Date: 20220112
  Transmission Date: 20220423
  Serious: Yes (Hospitalization, Other)
  Sender: FDA-Public Use
  Company Number: MX-UCBSA-2022000466

PATIENT
  Sex: Male

DRUGS (4)
  1. LEVETIRACETAM [Suspect]
     Active Substance: LEVETIRACETAM
     Indication: Epilepsy
     Dosage: 0.5 MILLILITER, 2X/DAY (BID)
     Route: 048
     Dates: start: 20130816, end: 2015
  2. LEVETIRACETAM [Suspect]
     Active Substance: LEVETIRACETAM
     Dosage: 0.7 MILLILITER, 2X/DAY (BID)
     Route: 048
  3. LEVETIRACETAM [Suspect]
     Active Substance: LEVETIRACETAM
     Dosage: 2 MILLILITER, 2X/DAY (BID)
     Route: 048
  4. LEPREZIL [Concomitant]
     Indication: Epilepsy
     Dosage: 1.5 MILLILITER, 2X/DAY (BID)

REACTIONS (9)
  - Gastrointestinal surgery [Unknown]
  - Vascular graft [Unknown]
  - Ventricular cisternostomy [Unknown]
  - Deafness [Recovered/Resolved]
  - Cochlea implant [Recovered/Resolved]
  - Seizure [Recovering/Resolving]
  - Drug dose titration not performed [Unknown]
  - Product substitution issue [Unknown]
  - Inability to afford medication [Unknown]

NARRATIVE: CASE EVENT DATE: 20130101
